FAERS Safety Report 13421074 (Version 1)
Quarter: 2017Q2

REPORT INFORMATION
  Report Type: Spontaneous
  Country: PL (occurrence: PL)
  Receive Date: 20170410
  Receipt Date: 20170410
  Transmission Date: 20170830
  Serious: Yes (Other)
  Sender: FDA-Public Use
  Company Number: PL-ENDO PHARMACEUTICALS INC-2017-001642

PATIENT
  Age: 76 Year
  Sex: Female

DRUGS (3)
  1. PREDNISONE TABLETS [Suspect]
     Active Substance: PREDNISONE
     Indication: PLASMA CELL MYELOMA
     Dosage: UNK UNK, UNKNOWN, 3 CYCLES
     Route: 065
  2. MELPHALAN HYDROCHLORIDE. [Suspect]
     Active Substance: MELPHALAN HYDROCHLORIDE
     Indication: PLASMA CELL MYELOMA
     Dosage: UNK UNK, UNKNOWN, 3 CYCLES
     Route: 065
  3. BORTEZOMIB [Suspect]
     Active Substance: BORTEZOMIB
     Indication: PLASMA CELL MYELOMA
     Dosage: UNK UNK, UNKNOWN, 3 CYCLES
     Route: 065

REACTIONS (4)
  - Infection [Unknown]
  - Pancytopenia [Unknown]
  - Deep vein thrombosis [Unknown]
  - Seizure [Unknown]
